FAERS Safety Report 5040250-7 (Version None)
Quarter: 2006Q2

REPORT INFORMATION
  Report Type: 
  Country: None (occurrence: None)
  Receive Date: 20060630
  Receipt Date: 20060215
  Transmission Date: 20061013
  Serious: Yes (Other)
  Sender: FDA-Public Use
  Company Number: PHMT2006CA00713

PATIENT
  Age: 71 Year
  Sex: Male

DRUGS (10)
  1. LEVOFLOXACIN [Suspect]
     Dosage: 500 MG, QD FOR 7 DAYS
     Route: 048
     Dates: start: 20051106
  2. PANTOPRAZOLE SODIUM [Concomitant]
     Dosage: 40 MG, BID
  3. FLOMAX [Concomitant]
     Dosage: 0.8 MG, QHS
     Route: 048
  4. MAXERAN [Concomitant]
     Dosage: 10 MG, Q4 HR PRN
     Route: 048
  5. MORPHINE [Concomitant]
     Dosage: 5 MG, Q4H ATC
     Route: 048
  6. LORAZEPAM [Concomitant]
     Dosage: 0.5-1.0 MG, QHS PRN
     Route: 048
  7. GLEEVEC [Suspect]
     Indication: GASTROINTESTINAL STROMAL TUMOUR
     Dosage: 100 MG, QD
  8. GLEEVEC [Suspect]
     Dosage: 400 MG, QD
     Dates: start: 20050528
  9. GLEEVEC [Suspect]
     Dosage: 200 MG/DAY
     Route: 048
  10. GLEEVEC [Suspect]
     Dosage: 300 MG/DAY
     Route: 048

REACTIONS (4)
  - DRUG INTERACTION [None]
  - LICHENOID KERATOSIS [None]
  - NEUTROPENIA [None]
  - RASH GENERALISED [None]
